FAERS Safety Report 6355593-4 (Version None)
Quarter: 2009Q3

REPORT INFORMATION
  Report Type: 
  Country: None (occurrence: None)
  Receive Date: 20090910
  Receipt Date: 20090825
  Transmission Date: 20100115
  Serious: Yes (Death)
  Sender: FDA-Public Use
  Company Number: 2008AL005475

PATIENT
  Age: 69 Year
  Sex: Female

DRUGS (43)
  1. DIGOXIN [Suspect]
     Dosage: 0.125MG, DAILY, PO
     Route: 048
  2. LOVENOX [Concomitant]
  3. PANAFIL [Concomitant]
  4. ADVAIR HFA [Concomitant]
  5. DILTIAZEM [Concomitant]
  6. ASPIRIN [Concomitant]
  7. VITAMIN D [Concomitant]
  8. METFORMIN HCL [Concomitant]
  9. PREDNISONE [Concomitant]
  10. LOPRESSOR [Concomitant]
  11. METOPROLOL TARTRATE [Concomitant]
  12. LORAZEPAM [Concomitant]
  13. GLIMEPIRIDE [Concomitant]
  14. ZITHROMAX [Concomitant]
  15. LEVAQUIN [Concomitant]
  16. DETROL [Concomitant]
  17. CIPROFLAXACIN [Concomitant]
  18. FAMOTIDINE [Concomitant]
  19. ACULAR [Concomitant]
  20. PAPAIN [Concomitant]
  21. LOTEMAX [Concomitant]
  22. OXYCONTIN [Concomitant]
  23. AVANDIA [Concomitant]
  24. VALTREX [Concomitant]
  25. CEPHALEXIN [Concomitant]
  26. GLUCOSAMINE [Concomitant]
  27. CARDIZEM [Concomitant]
  28. PEPCID [Concomitant]
  29. GABAPENTIN [Concomitant]
  30. DOCUSATE SODIUM [Concomitant]
  31. HEPARIN [Concomitant]
  32. LEVOFLOXACIN [Concomitant]
  33. AVELOX [Concomitant]
  34. ACETAMINOPHEN [Concomitant]
  35. FISH OIL [Concomitant]
  36. AMIODARONE HCL [Concomitant]
  37. ZOLPIDEM [Concomitant]
  38. PROCAN [Concomitant]
  39. ACCUPRIL [Concomitant]
  40. COVERA-HS [Concomitant]
  41. FELDENE [Concomitant]
  42. METHOTREXATE [Concomitant]
  43. TAGAMET [Concomitant]

REACTIONS (38)
  - ACTIVITIES OF DAILY LIVING IMPAIRED [None]
  - ANAEMIA [None]
  - ANHEDONIA [None]
  - ANXIETY [None]
  - ATRIAL FIBRILLATION [None]
  - BRONCHITIS [None]
  - CARDIAC DISORDER [None]
  - CELLULITIS [None]
  - CHOLELITHIASIS [None]
  - CONFUSIONAL STATE [None]
  - CONTUSION [None]
  - DISORIENTATION [None]
  - DIZZINESS [None]
  - ECCHYMOSIS [None]
  - ECONOMIC PROBLEM [None]
  - ERYTHEMA [None]
  - FACE INJURY [None]
  - FALL [None]
  - HEAD INJURY [None]
  - HEADACHE [None]
  - HIP FRACTURE [None]
  - HYPERTENSION [None]
  - HYPOXIA [None]
  - INJURY [None]
  - METABOLIC ENCEPHALOPATHY [None]
  - NAUSEA [None]
  - ONYCHOMADESIS [None]
  - OSTEOMYELITIS [None]
  - PAIN [None]
  - PURULENCE [None]
  - PYREXIA [None]
  - RENAL FAILURE ACUTE [None]
  - SKIN LACERATION [None]
  - SOCIAL PROBLEM [None]
  - SWELLING [None]
  - URINARY TRACT INFECTION ENTEROCOCCAL [None]
  - VISUAL ACUITY REDUCED [None]
  - VOMITING [None]
